FAERS Safety Report 6877094-7 (Version None)
Quarter: 2010Q3

REPORT INFORMATION
  Report Type: 
  Country: None (occurrence: None)
  Receive Date: 20100727
  Receipt Date: 20100713
  Transmission Date: 20110219
  Serious: Yes (Death, Hospitalization)
  Sender: FDA-Public Use
  Company Number: GB-WATSON-2010-09627

PATIENT
  Age: 97 Year
  Sex: Female

DRUGS (10)
  1. CITALOPRAM HYDROBROMIDE [Suspect]
     Indication: DEPRESSION
     Dosage: 10 MG, UNKNOWN
     Route: 048
     Dates: start: 20100512, end: 20100517
  2. ADCAL-D3 [Concomitant]
     Dosage: 1 DF, BID
     Route: 065
  3. ASPIRIN [Concomitant]
     Dosage: 75 MG, UNK
     Route: 048
  4. ATORVASTATIN [Concomitant]
     Dosage: 20 MG, UNK
     Route: 065
  5. CANDESARTAN [Concomitant]
     Dosage: 8 MG, UNK
     Route: 048
  6. CARVEDILOL [Concomitant]
     Dosage: 6 1/4 MG, UNK
     Route: 065
  7. FUROSEMIDE [Concomitant]
     Dosage: 40 MG, UNK
     Route: 048
  8. MOVICOL                            /01053601/ [Concomitant]
     Dosage: 1 DF, UNK
     Route: 065
  9. OMEPRAZOLE [Concomitant]
     Dosage: 20 MG, UNK
     Route: 065
  10. TRAZODONE [Concomitant]
     Indication: DEPRESSION
     Dosage: 100 MG, UNK
     Route: 048
     Dates: end: 20100507

REACTIONS (2)
  - DEATH [None]
  - HYPONATRAEMIA [None]
